FAERS Safety Report 6014290-5 (Version None)
Quarter: 2008Q4

REPORT INFORMATION
  Report Type: 
  Country: None (occurrence: None)
  Receive Date: 20081219
  Receipt Date: 20080326
  Transmission Date: 20090506
  Serious: No
  Sender: FDA-Public Use
  Company Number: A0717584A

PATIENT
  Age: 55 Year
  Sex: Male

DRUGS (3)
  1. AVODART [Suspect]
     Indication: MICTURITION DISORDER
     Dosage: .5MG PER DAY
     Route: 048
     Dates: start: 20080324, end: 20080325
  2. PROZAC [Concomitant]
  3. ATENOLOL [Concomitant]

REACTIONS (1)
  - DIZZINESS [None]
